FAERS Safety Report 17026074 (Version 2)
Quarter: 2019Q4

REPORT INFORMATION
  Report Type: Report from Study
  Country: BE (occurrence: BE)
  Receive Date: 20191113
  Receipt Date: 20191217
  Transmission Date: 20200122
  Serious: Yes (Hospitalization)
  Sender: FDA-Public Use
  Company Number: BE-ASPEN-GLO2019BE010214

PATIENT
  Age: 76 Year
  Sex: Female

DRUGS (6)
  1. REVLIMID [Suspect]
     Active Substance: LENALIDOMIDE
     Dosage: 25 MG, QD
     Route: 048
     Dates: start: 20180801, end: 20180821
  2. DEXAMETHASONE. [Suspect]
     Active Substance: DEXAMETHASONE
     Indication: PLASMA CELL MYELOMA
     Dosage: 40 MG, 1 DOSE 3 DAYS
     Route: 048
     Dates: start: 20180601, end: 20180621
  3. VELCADE [Suspect]
     Active Substance: BORTEZOMIB
     Indication: PLASMA CELL MYELOMA
     Dosage: 1.3 MG/M2, 1 DOSE EVERY 3 DAYS
     Route: 058
     Dates: start: 20180601, end: 20180621
  4. REVLIMID [Suspect]
     Active Substance: LENALIDOMIDE
     Indication: PLASMA CELL MYELOMA
     Dosage: 25 MG, QD
     Route: 048
     Dates: start: 20180704, end: 20180724
  5. DEXAMETHASONE. [Suspect]
     Active Substance: DEXAMETHASONE
     Dosage: 40 MG WEEKLY
     Route: 048
     Dates: start: 20180704, end: 20180827
  6. THALIDOMIDE [Suspect]
     Active Substance: THALIDOMIDE
     Indication: PLASMA CELL MYELOMA
     Dosage: 100 MG, 1 DOSE 3 DAYS
     Route: 048
     Dates: start: 20180601, end: 20180621

REACTIONS (4)
  - Asthenia [Recovering/Resolving]
  - Paraesthesia [Not Recovered/Not Resolved]
  - Orthostatic hypotension [Recovered/Resolved]
  - Nausea [Recovered/Resolved]

NARRATIVE: CASE EVENT DATE: 20180621
